FAERS Safety Report 4364318-3 (Version None)
Quarter: 2004Q2

REPORT INFORMATION
  Report Type: 
  Country: None (occurrence: None)
  Receive Date: 20040525
  Receipt Date: 20030610
  Transmission Date: 20050107
  Serious: No
  Sender: FDA-Public Use
  Company Number: US-BRISTOL-MYERS SQUIBB COMPANY-12297404

PATIENT
  Age: 53 Year
  Sex: Female

DRUGS (1)
  1. CYTOXAN [Suspect]
     Dosage: 1150 MG
     Route: 042
     Dates: start: 20030422, end: 20030513

REACTIONS (1)
  - ADVERSE DRUG REACTION [None]
